FAERS Safety Report 25611353 (Version 1)
Quarter: 2025Q3

REPORT INFORMATION
  Report Type: Spontaneous
  Country: EU (occurrence: EU)
  Receive Date: 20250728
  Receipt Date: 20250728
  Transmission Date: 20251020
  Serious: Yes (Other)
  Sender: TEVA
  Company Number: None

PATIENT
  Age: 5 Year
  Sex: Male
  Weight: 20 kg

DRUGS (1)
  1. MYCOPHENOLATE MOFETIL [Suspect]
     Active Substance: MYCOPHENOLATE MOFETIL
     Indication: Prophylaxis against transplant rejection
     Dosage: MYFENAX
     Route: 065
     Dates: start: 202409, end: 20250327

REACTIONS (2)
  - Cytomegalovirus enteritis [Recovered/Resolved]
  - Diarrhoea [Recovered/Resolved]

NARRATIVE: CASE EVENT DATE: 20250301
